FAERS Safety Report 6287159-9 (Version None)
Quarter: 2009Q3

REPORT INFORMATION
  Report Type: 
  Country: None (occurrence: None)
  Receive Date: 20090728
  Receipt Date: 20090715
  Transmission Date: 20100115
  Serious: Yes (Hospitalization)
  Sender: FDA-Public Use
  Company Number: US-ELI_LILLY_AND_COMPANY-US200907003121

PATIENT
  Sex: Male

DRUGS (5)
  1. ZYPREXA ZYDIS [Suspect]
     Indication: SCHIZOPHRENIA
     Dosage: 30 MG, EACH EVENING
     Dates: end: 20081201
  2. ZYPREXA ZYDIS [Suspect]
     Dosage: 45 MG, UNK
     Dates: start: 20090101, end: 20090101
  3. ZYPREXA ZYDIS [Suspect]
     Dosage: 45 MG, EACH EVENING
     Dates: start: 20090101
  4. MARIJUANA [Concomitant]
     Dates: start: 20090710
  5. MARIJUANA [Concomitant]
     Dates: start: 20090712

REACTIONS (4)
  - FEAR [None]
  - HOSPITALISATION [None]
  - OVERDOSE [None]
  - TREMOR [None]
